FAERS Safety Report 18335226 (Version 2)
Quarter: 2020Q4

REPORT INFORMATION
  Report Type: Spontaneous
  Country: AU (occurrence: AU)
  Receive Date: 20201001
  Receipt Date: 20201111
  Transmission Date: 20210113
  Serious: Yes (Hospitalization, Other)
  Sender: FDA-Public Use
  Company Number: AU-ABBVIE-20K-008-3586974-00

PATIENT
  Age: 58 Year
  Sex: Female
  Weight: 81.3 kg

DRUGS (20)
  1. EPILIM [Concomitant]
     Active Substance: VALPROATE SODIUM
     Indication: AFFECTIVE DISORDER
  2. EPILIM [Concomitant]
     Active Substance: VALPROATE SODIUM
     Indication: EPILEPSY
  3. DUODOPA [Suspect]
     Active Substance: CARBIDOPA\LEVODOPA
     Dosage: MORNING DOSE: 13.3 ML/HR, CONTINUOUS DOSE: 4.9ML/HR; EXTRA?DOSE: 1.3 ML/HR, DOSE DECREASED
     Route: 050
     Dates: start: 201806, end: 20180727
  4. PENICILLIN [Suspect]
     Active Substance: PENICILLIN
     Indication: PRODUCT USED FOR UNKNOWN INDICATION
     Route: 065
  5. MAGNESIUM ASPARTATE [Concomitant]
     Active Substance: MAGNESIUM ASPARTATE
     Indication: PRODUCT USED FOR UNKNOWN INDICATION
     Dosage: MANE
     Route: 048
  6. SODIUM VALPROATE [Concomitant]
     Active Substance: VALPROATE SODIUM
     Indication: BIPOLAR DISORDER
     Route: 048
  7. SOMAC [Concomitant]
     Active Substance: PANTOPRAZOLE SODIUM
     Indication: GASTROOESOPHAGEAL REFLUX DISEASE
     Dosage: AT NIGHT
  8. QUETIAPINE SANDOZ [Concomitant]
     Active Substance: QUETIAPINE
     Indication: AFFECTIVE DISORDER
     Dosage: AT NIGHT
  9. MACRODANTIN [Concomitant]
     Active Substance: NITROFURANTOIN
     Indication: INFECTION
     Route: 048
  10. FLUDROCORTISONE [Concomitant]
     Active Substance: FLUDROCORTISONE
     Indication: ORTHOSTATIC HYPOTENSION
     Dosage: MANE
     Route: 048
  11. MOVICOL [Concomitant]
     Active Substance: POLYETHYLENE GLYCOL 3350\POTASSIUM CHLORIDE\SODIUM BICARBONATE\SODIUM CHLORIDE
     Indication: CONSTIPATION
     Dosage: POWDER
     Route: 048
  12. HERRON CLEARLAX [Concomitant]
     Indication: CONSTIPATION
  13. DUODOPA [Suspect]
     Active Substance: CARBIDOPA\LEVODOPA
     Indication: PARKINSON^S DISEASE
     Dosage: DAILY 7:00-22:00
     Route: 050
     Dates: start: 20180222, end: 2018
  14. SEROQUEL [Concomitant]
     Active Substance: QUETIAPINE FUMARATE
     Indication: BIPOLAR DISORDER
     Dosage: NOCTE
     Route: 048
  15. SINEMET [Concomitant]
     Active Substance: CARBIDOPA\LEVODOPA
     Indication: PARKINSON^S DISEASE
     Dosage: CR ?NOCTE
  16. MACRODANTIN [Concomitant]
     Active Substance: NITROFURANTOIN
     Indication: URINARY TRACT INFECTION
  17. COLOXYL [Concomitant]
     Indication: CONSTIPATION
     Route: 048
  18. PARACETAMOL SANDOZ [Concomitant]
     Active Substance: ACETAMINOPHEN
     Indication: PAIN
  19. ASMOL [Concomitant]
     Indication: ASTHMA
     Dosage: PUFFER
     Route: 048
  20. SOMAC [Concomitant]
     Active Substance: PANTOPRAZOLE SODIUM
     Indication: ULCER

REACTIONS (10)
  - Lumbar spinal stenosis [Unknown]
  - Pulmonary oedema [Unknown]
  - Spinal osteoarthritis [Unknown]
  - Sleep apnoea syndrome [Not Recovered/Not Resolved]
  - Exostosis [Unknown]
  - Fall [Unknown]
  - Drug eruption [Unknown]
  - Orthostatic hypotension [Recovered/Resolved]
  - General physical health deterioration [Unknown]
  - Parkinson^s disease [Unknown]

NARRATIVE: CASE EVENT DATE: 20180530
